FAERS Safety Report 8237264-2 (Version None)
Quarter: 2012Q1

REPORT INFORMATION
  Report Type: 
  Country: None (occurrence: None)
  Receive Date: 20120327
  Receipt Date: 20120327
  Transmission Date: 20120608
  Serious: Yes (Other)
  Sender: FDA-Public Use
  Company Number: None

PATIENT
  Age: 18 Year
  Sex: Male
  Weight: 77.11 kg

DRUGS (1)
  1. FINASTERIDE [Suspect]
     Indication: ALOPECIA
     Dosage: 1.0 MG
     Route: 048
     Dates: start: 20120210, end: 20120304

REACTIONS (8)
  - MENTAL IMPAIRMENT [None]
  - ANXIETY [None]
  - ANGER [None]
  - FEELING ABNORMAL [None]
  - DEPRESSION [None]
  - ERECTILE DYSFUNCTION [None]
  - MOOD SWINGS [None]
  - MEMORY IMPAIRMENT [None]
